FAERS Safety Report 24444166 (Version 2)
Quarter: 2024Q4

REPORT INFORMATION
  Report Type: Report from Study
  Country: CA (occurrence: CA)
  Receive Date: 20241016
  Receipt Date: 20241017
  Transmission Date: 20250115
  Serious: No
  Sender: ROCHE
  Company Number: CA-ROCHE-2360970

PATIENT
  Age: 57 Year
  Sex: Male

DRUGS (18)
  1. RITUXAN [Suspect]
     Active Substance: RITUXIMAB
     Indication: Mononeuropathy multiplex
     Route: 042
     Dates: start: 20190716, end: 20200210
  2. RITUXAN [Suspect]
     Active Substance: RITUXIMAB
     Route: 042
     Dates: start: 20200612, end: 20220512
  3. RITUXAN [Suspect]
     Active Substance: RITUXIMAB
     Dosage: DAY 1, DAY 15
     Route: 042
     Dates: start: 20230331
  4. RITUXAN [Suspect]
     Active Substance: RITUXIMAB
     Route: 042
  5. RITUXAN [Suspect]
     Active Substance: RITUXIMAB
     Route: 042
  6. RITUXAN [Suspect]
     Active Substance: RITUXIMAB
     Route: 042
  7. RITUXAN [Suspect]
     Active Substance: RITUXIMAB
     Route: 042
  8. RITUXAN [Suspect]
     Active Substance: RITUXIMAB
     Route: 042
  9. BENADRYL [Concomitant]
     Active Substance: DIPHENHYDRAMINE HYDROCHLORIDE
     Indication: Premedication
     Route: 048
     Dates: start: 20190716
  10. LYRICA [Concomitant]
     Active Substance: PREGABALIN
     Indication: Product used for unknown indication
  11. SOLU-MEDROL [Concomitant]
     Active Substance: METHYLPREDNISOLONE SODIUM SUCCINATE
     Indication: Premedication
     Route: 042
     Dates: start: 20190716
  12. SYNTHROID [Concomitant]
     Active Substance: LEVOTHYROXINE SODIUM
     Indication: Product used for unknown indication
  13. TYLENOL [Concomitant]
     Active Substance: ACETAMINOPHEN
     Indication: Premedication
     Route: 048
     Dates: start: 20190716
  14. TYLENOL [Concomitant]
     Active Substance: ACETAMINOPHEN
     Route: 048
     Dates: start: 20190716
  15. ZANTAC [Concomitant]
     Active Substance: RANITIDINE HYDROCHLORIDE
     Indication: Premedication
     Route: 048
     Dates: start: 20190716, end: 20190730
  16. PEPCID [Concomitant]
     Active Substance: FAMOTIDINE
     Indication: Premedication
     Route: 048
     Dates: start: 20200127
  17. METHYLPREDNISOLONE [Concomitant]
     Active Substance: METHYLPREDNISOLONE
     Indication: Premedication
     Route: 042
     Dates: start: 20190716
  18. METHYLPREDNISOLONE [Concomitant]
     Active Substance: METHYLPREDNISOLONE
     Route: 042

REACTIONS (7)
  - Blood pressure systolic increased [Unknown]
  - Blood pressure fluctuation [Unknown]
  - Off label use [Unknown]
  - Heart rate decreased [Unknown]
  - Blood pressure systolic abnormal [Unknown]
  - Blood pressure diastolic increased [Unknown]
  - Blood pressure diastolic abnormal [Unknown]

NARRATIVE: CASE EVENT DATE: 20190716
